FAERS Safety Report 5189128-9 (Version None)
Quarter: 2006Q4

REPORT INFORMATION
  Report Type: 
  Country: None (occurrence: None)
  Receive Date: 20061215
  Receipt Date: 20061206
  Transmission Date: 20070319
  Serious: Yes (Hospitalization)
  Sender: FDA-Public Use
  Company Number: 2006BI015385

PATIENT
  Age: 60 Year
  Sex: Female
  Weight: 114.3065 kg

DRUGS (9)
  1. AVONEX [Suspect]
     Indication: MULTIPLE SCLEROSIS
     Dosage: 30 UG;QW;IM
     Route: 030
     Dates: start: 20040517
  2. PERCOCET [Concomitant]
  3. MULTI-VITAMIN [Concomitant]
  4. NAPROXEN [Concomitant]
  5. SYNTHROID [Concomitant]
  6. METFORMIN HCL [Concomitant]
  7. GLIPIZIDE [Concomitant]
  8. INSULIN 75/25 [Concomitant]
  9. STEROIDS [Concomitant]

REACTIONS (4)
  - ATRIAL FIBRILLATION [None]
  - CARDIOMYOPATHY [None]
  - MITRAL VALVE INCOMPETENCE [None]
  - SINUSITIS [None]
